FAERS Safety Report 4467306-1 (Version None)
Quarter: 2004Q4

REPORT INFORMATION
  Report Type: 
  Country: None (occurrence: None)
  Receive Date: 20041006
  Receipt Date: 20040929
  Transmission Date: 20050328
  Serious: Yes (Other)
  Sender: FDA-Public Use
  Company Number: BE-GLAXOSMITHKLINE-B0346890A

PATIENT
  Age: 66 Year
  Sex: Female

DRUGS (2)
  1. SEROXAT [Suspect]
     Indication: DEPRESSION
     Route: 048
     Dates: start: 20020711
  2. SULFASALAZINE [Concomitant]
     Indication: CROHN'S DISEASE

REACTIONS (1)
  - HEPATIC STEATOSIS [None]
